FAERS Safety Report 21778503 (Version 1)
Quarter: 2022Q4

REPORT INFORMATION
  Report Type: Spontaneous
  Country: US (occurrence: US)
  Receive Date: 20221226
  Receipt Date: 20221226
  Transmission Date: 20230113
  Serious: No
  Sender: FDA-Public Use
  Company Number: US-BAYER-2022A171412

PATIENT
  Age: 36 Year
  Sex: Female
  Weight: 122.4 kg

DRUGS (10)
  1. MIRENA [Suspect]
     Active Substance: LEVONORGESTREL
     Indication: Product used for unknown indication
     Dosage: 20?G/DAY
     Route: 015
     Dates: start: 2022
  2. KORLYM [Suspect]
     Active Substance: MIFEPRISTONE
     Indication: Cushing^s syndrome
     Dosage: 300 MG, QD
     Route: 048
     Dates: start: 20221122
  3. COLESTIPOL [Concomitant]
     Active Substance: COLESTIPOL
  4. DULOXETINE [Concomitant]
     Active Substance: DULOXETINE
  5. GLYCOPYRROLATE [Concomitant]
     Active Substance: GLYCOPYRROLATE
  6. HYDROXYCHLOROQUINE [Concomitant]
     Active Substance: HYDROXYCHLOROQUINE
  7. VITAMINS [Concomitant]
     Active Substance: VITAMINS
  8. PANTOPRAZOLE [Concomitant]
     Active Substance: PANTOPRAZOLE
  9. PROPRANOLOL [Concomitant]
     Active Substance: PROPRANOLOL HYDROCHLORIDE
  10. TOPAMAX [Concomitant]
     Active Substance: TOPIRAMATE

REACTIONS (7)
  - Vaginal haemorrhage [None]
  - Urticaria [Not Recovered/Not Resolved]
  - Rash erythematous [Not Recovered/Not Resolved]
  - Migraine [None]
  - Pruritus [Not Recovered/Not Resolved]
  - Fatigue [None]
  - Nausea [None]
